FAERS Safety Report 5874071-X (Version None)
Quarter: 2008Q3

REPORT INFORMATION
  Report Type: 
  Country: None (occurrence: None)
  Receive Date: 20080829
  Receipt Date: 20080812
  Transmission Date: 20090109
  Serious: Yes (Other)
  Sender: FDA-Public Use
  Company Number: DE-1166987

PATIENT
  Age: 6 Year
  Sex: Male

DRUGS (1)
  1. CYCLOPENTOLATE HCL [Suspect]
     Route: 047
     Dates: start: 20080811, end: 20080811

REACTIONS (6)
  - DISORIENTATION [None]
  - DIZZINESS [None]
  - FLUSHING [None]
  - GAIT DISTURBANCE [None]
  - HALLUCINATION [None]
  - MYDRIASIS [None]
